FAERS Safety Report 9902611 (Version 1)
Quarter: 2014Q1

REPORT INFORMATION
  Report Type: Spontaneous
  Country: US (occurrence: US)
  Receive Date: 20140217
  Receipt Date: 20140217
  Transmission Date: 20141002
  Serious: No
  Sender: FDA-Public Use
  Company Number: US-009507513-1402USA008043

PATIENT
  Sex: 0

DRUGS (1)
  1. OXYTROL FOR WOMEN [Suspect]
     Indication: INCONTINENCE
     Dosage: UNK, UNKNOWN
     Route: 062

REACTIONS (4)
  - Skin exfoliation [Unknown]
  - Pain [Unknown]
  - Skin discomfort [Unknown]
  - Drug effect decreased [Unknown]
